FAERS Safety Report 6042715-8 (Version None)
Quarter: 2009Q1

REPORT INFORMATION
  Report Type: 
  Country: None (occurrence: None)
  Receive Date: 20090119
  Receipt Date: 20081212
  Transmission Date: 20090719
  Serious: Yes (Other)
  Sender: FDA-Public Use
  Company Number: ZA-BAYER-200911004GPV

PATIENT
  Sex: Female

DRUGS (1)
  1. MIRENA [Suspect]
     Indication: CONTRACEPTION
     Route: 015
     Dates: start: 20070801

REACTIONS (2)
  - ANTIPHOSPHOLIPID SYNDROME [None]
  - SYSTEMIC LUPUS ERYTHEMATOSUS [None]
